FAERS Safety Report 20889962 (Version 7)
Quarter: 2025Q2

REPORT INFORMATION
  Report Type: Spontaneous
  Country: US (occurrence: US)
  Receive Date: 20220530
  Receipt Date: 20250429
  Transmission Date: 20250716
  Serious: No
  Sender: BIOGEN
  Company Number: US-BIOGEN-2022BI01127230

PATIENT
  Age: 42 Year
  Sex: Female

DRUGS (3)
  1. PLEGRIDY [Suspect]
     Active Substance: PEGINTERFERON BETA-1A
     Indication: Multiple sclerosis
     Route: 050
     Dates: start: 20220510
  2. PLEGRIDY [Suspect]
     Active Substance: PEGINTERFERON BETA-1A
     Route: 050
     Dates: start: 20220524
  3. PLEGRIDY [Suspect]
     Active Substance: PEGINTERFERON BETA-1A
     Route: 050

REACTIONS (14)
  - Rash [Not Recovered/Not Resolved]
  - Wound complication [Not Recovered/Not Resolved]
  - Gait disturbance [Unknown]
  - Injection site induration [Unknown]
  - Joint swelling [Recovered/Resolved]
  - Peripheral swelling [Recovered/Resolved]
  - Feeling abnormal [Recovered/Resolved]
  - Hypermetabolism [Recovered/Resolved]
  - Paraesthesia [Recovered/Resolved]
  - Petechiae [Recovered/Resolved]
  - C-reactive protein increased [Recovered/Resolved]
  - Metabolic function test abnormal [Recovered/Resolved]
  - Hypersensitivity [Unknown]
  - Influenza like illness [Recovered/Resolved]

NARRATIVE: CASE EVENT DATE: 20220510
